FAERS Safety Report 25004436 (Version 1)
Quarter: 2025Q1

REPORT INFORMATION
  Report Type: Spontaneous
  Country: US (occurrence: None)
  Receive Date: 20250222
  Receipt Date: 20250222
  Transmission Date: 20250408
  Serious: Yes (Death, Hospitalization)
  Sender: FDA-CTU
  Company Number: None

PATIENT
  Age: 69 Year
  Sex: Male

DRUGS (2)
  1. LENALIDOMIDE [Suspect]
     Active Substance: LENALIDOMIDE
     Indication: Myelodysplastic syndrome
     Dates: start: 20240722, end: 202411
  2. EPOGEN [Suspect]
     Active Substance: ERYTHROPOIETIN

REACTIONS (2)
  - Acute respiratory failure [None]
  - Pneumothorax [None]

NARRATIVE: CASE EVENT DATE: 20250110
